FAERS Safety Report 23032036 (Version 1)
Quarter: 2023Q4

REPORT INFORMATION
  Report Type: Spontaneous
  Country: PL (occurrence: PL)
  Receive Date: 20231005
  Receipt Date: 20231005
  Transmission Date: 20240109
  Serious: Yes (Other)
  Sender: FDA-Public Use
  Company Number: None

PATIENT
  Age: 63 Year
  Weight: 107 kg

DRUGS (2)
  1. INFLIXIMAB [Suspect]
     Active Substance: INFLIXIMAB
     Indication: Product used for unknown indication
     Dosage: WEEK ZERO, 5MG/KG BODY MASS (535MG) EVERY 0,2, 6 A THEN EVERY 8 WEEKS
     Route: 042
     Dates: start: 20190627
  2. INFLIXIMAB [Suspect]
     Active Substance: INFLIXIMAB
     Dosage: WEEK TWO, 5MG/KG BODY MASS (535MG) EVERY 0,2,6 A THEN EVERY 8 WEEKS
     Route: 042
     Dates: end: 20190724

REACTIONS (6)
  - Hyperhidrosis [Recovered/Resolved]
  - Heart rate abnormal [Recovered/Resolved]
  - Blood pressure abnormal [Recovered/Resolved]
  - Oxygen saturation [Recovered/Resolved]
  - Erythema [Recovered/Resolved]
  - Dyspnoea [Recovered/Resolved]

NARRATIVE: CASE EVENT DATE: 20190724
